FAERS Safety Report 4649199-2 (Version None)
Quarter: 2005Q2

REPORT INFORMATION
  Report Type: 
  Country: None (occurrence: None)
  Receive Date: 20050331
  Receipt Date: 20041215
  Transmission Date: 20051028
  Serious: No
  Sender: FDA-Public Use
  Company Number: 04P-163-0283815-00

PATIENT
  Age: 65 Year
  Sex: Female
  Weight: 59.8748 kg

DRUGS (5)
  1. HUMIRA [Suspect]
     Indication: RHEUMATOID ARTHRITIS
     Dosage: 40 MG, 1 IN 1 D, SUBCUTANEOUS
     Route: 058
     Dates: start: 20030601
  2. MONOPRIL [Concomitant]
  3. ATORVASTATIN CALCIUM [Concomitant]
  4. AREVA [Concomitant]
  5. LOTERIN [Concomitant]

REACTIONS (1)
  - WOUND INFECTION [None]
